FAERS Safety Report 8942190 (Version 1)
Quarter: 2012Q4

REPORT INFORMATION
  Report Type: 
  Country: US (occurrence: US)
  Receive Date: 20121202
  Receipt Date: 20121202
  Transmission Date: 20130627
  Serious: No
  Sender: FDA-Public Use
  Company Number: US-009507513-1211USA012815

PATIENT
  Age: 3 Year
  Sex: Male
  Weight: 15.87 kg

DRUGS (2)
  1. CLARITIN-D [Suspect]
     Indication: PRODUCT USED FOR UNKNOWN INDICATION
     Dosage: UNK UNK, Once
     Route: 048
     Dates: start: 20120818
  2. SINGULAIR [Concomitant]
     Indication: PRODUCT USED FOR UNKNOWN INDICATION
     Dosage: UNK, hs

REACTIONS (1)
  - Accidental overdose [Not Recovered/Not Resolved]
